FAERS Safety Report 6393765-3 (Version None)
Quarter: 2009Q4

REPORT INFORMATION
  Report Type: 
  Country: None (occurrence: None)
  Receive Date: 20091008
  Receipt Date: 20090924
  Transmission Date: 20100525
  Serious: Yes (Hospitalization, Other)
  Sender: FDA-Public Use
  Company Number: JP-PFIZER INC-2009274627

PATIENT
  Age: 44 Year

DRUGS (9)
  1. SUNITINIB MALATE [Suspect]
     Indication: RENAL CELL CARCINOMA
     Dosage: 50 MG, 1X/DAY
     Route: 048
     Dates: start: 20090626
  2. DASEN [Concomitant]
     Dosage: UNK
     Route: 048
  3. OXYCONTIN [Concomitant]
     Dosage: UNK
     Route: 048
  4. CODEINE PHOSPHATE [Concomitant]
     Dosage: UNK
     Route: 048
  5. OXYNORM [Concomitant]
     Dosage: UNK
     Route: 048
  6. MEDICON [Concomitant]
     Dosage: UNK
     Route: 048
  7. LASIX [Concomitant]
     Dosage: UNK
     Route: 048
  8. DERMOVATE [Concomitant]
     Dosage: UNK
     Route: 062
  9. VOLTAREN [Concomitant]
     Dosage: UNK
     Route: 054

REACTIONS (1)
  - PLEURAL EFFUSION [None]
